FAERS Safety Report 11183624 (Version 1)
Quarter: 2015Q2

REPORT INFORMATION
  Report Type: Spontaneous
  Country: US (occurrence: None)
  Receive Date: 20150610
  Receipt Date: 20150610
  Transmission Date: 20150821
  Serious: No
  Sender: FDA-Public Use
  Company Number: None

PATIENT
  Age: 30 Year
  Sex: Female
  Weight: 70.76 kg

DRUGS (1)
  1. SUBOXONE [Suspect]
     Active Substance: BUPRENORPHINE HYDROCHLORIDE\NALOXONE HYDROCHLORIDE
     Indication: DRUG DEPENDENCE
     Dosage: TAKEN UNDER THE TONGUE
     Dates: start: 20150606, end: 20150608

REACTIONS (3)
  - Glossodynia [None]
  - Skin exfoliation [None]
  - Haemorrhage [None]

NARRATIVE: CASE EVENT DATE: 20150608
